FAERS Safety Report 5843058-5 (Version None)
Quarter: 2008Q3

REPORT INFORMATION
  Report Type: 
  Country: None (occurrence: None)
  Receive Date: 20080808
  Receipt Date: 20080804
  Transmission Date: 20090109
  Serious: Yes (Life-Threatening)
  Sender: FDA-Public Use
  Company Number: 2008-02884

PATIENT
  Age: 53 Year
  Sex: Female
  Weight: 54 kg

DRUGS (1)
  1. VELCADE [Suspect]
     Indication: MULTIPLE MYELOMA
     Dosage: INTRAVENOUS
     Route: 042

REACTIONS (1)
  - TUMOUR LYSIS SYNDROME [None]
